FAERS Safety Report 17907806 (Version 1)
Quarter: 2020Q2

REPORT INFORMATION
  Report Type: Spontaneous
  Country: CH (occurrence: CH)
  Receive Date: 20200617
  Receipt Date: 20200617
  Transmission Date: 20200714
  Serious: Yes (Other)
  Sender: FDA-Public Use
  Company Number: CH-TEVA-2020-CH-1510209

PATIENT
  Age: 50 Year
  Sex: Female

DRUGS (12)
  1. DACLATASVIR. [Interacting]
     Active Substance: DACLATASVIR
     Indication: CHRONIC HEPATITIS C
     Dosage: 60 MILLIGRAM DAILY; FIRST-LINE
     Route: 065
     Dates: start: 201509
  2. RIBAVIRIN. [Interacting]
     Active Substance: RIBAVIRIN
     Indication: CHRONIC HEPATITIS C
     Dosage: 1000 MILLIGRAM DAILY; WEIGHT-BASED 1000MG DAILY IN 2 DOSES; SECOND-LINE
     Route: 065
  3. SOFOSBUVIR [Interacting]
     Active Substance: SOFOSBUVIR
     Dosage: 400 MILLIGRAM DAILY; SECOND-LINE
     Route: 065
  4. VELPATASVIR [Interacting]
     Active Substance: VELPATASVIR
     Dosage: 100 MILLIGRAM DAILY; THIRD-LINE
     Route: 065
     Dates: start: 201804
  5. ESOMEPRAZOLE. [Suspect]
     Active Substance: ESOMEPRAZOLE MAGNESIUM
     Indication: GASTROOESOPHAGEAL REFLUX DISEASE
     Dosage: 20 MILLIGRAM DAILY;
     Route: 065
  6. SOFOSBUVIR [Interacting]
     Active Substance: SOFOSBUVIR
     Dosage: 400 MILLIGRAM DAILY; THIRD-LINE
     Route: 065
     Dates: start: 201804
  7. OMEPRAZOLE. [Interacting]
     Active Substance: OMEPRAZOLE
     Indication: GASTROOESOPHAGEAL REFLUX DISEASE
     Route: 065
  8. VELPATASVIR [Interacting]
     Active Substance: VELPATASVIR
     Indication: CHRONIC HEPATITIS C
     Dosage: 100 MILLIGRAM DAILY; SECOND-LINE
     Route: 065
  9. SOFOSBUVIR [Interacting]
     Active Substance: SOFOSBUVIR
     Indication: CHRONIC HEPATITIS C
     Dosage: 400 MILLIGRAM DAILY; FIRST-LINE
     Route: 065
     Dates: start: 201509
  10. VOXILAPREVIR [Interacting]
     Active Substance: VOXILAPREVIR
     Indication: CHRONIC HEPATITIS C
     Dosage: 100 MILLIGRAM DAILY; THIRD-LINE
     Route: 065
     Dates: start: 201804
  11. GLECAPREVIR/PIBRENTASVIR [Suspect]
     Active Substance: GLECAPREVIR\PIBRENTASVIR
     Indication: CHRONIC HEPATITIS C
     Route: 065
  12. DEANXIT [Concomitant]
     Active Substance: FLUPENTIXOL DIHYDROCHLORIDE\MELITRACEN HYDROCHLORIDE
     Indication: DEPRESSION
     Route: 065

REACTIONS (4)
  - Antiviral drug level below therapeutic [Recovered/Resolved]
  - Virologic failure [Recovered/Resolved]
  - Drug interaction [Recovered/Resolved]
  - Off label use [Unknown]
